FAERS Safety Report 18807730 (Version 1)
Quarter: 2021Q1

REPORT INFORMATION
  Report Type: Spontaneous
  Country: CH (occurrence: CH)
  Receive Date: 20210129
  Receipt Date: 20210129
  Transmission Date: 20210419
  Serious: Yes (Other)
  Sender: FDA-Public Use
  Company Number: CH-SUN PHARMACEUTICAL INDUSTRIES LTD-2021RR-278137

PATIENT
  Sex: Female

DRUGS (2)
  1. LENALIDOMIDE [Suspect]
     Active Substance: LENALIDOMIDE
     Indication: MYOPATHY
     Dosage: UNK
     Route: 065
     Dates: start: 2014, end: 2018
  2. DEXAMETHASONE. [Suspect]
     Active Substance: DEXAMETHASONE
     Indication: MYOPATHY
     Dosage: UNK
     Route: 065
     Dates: start: 2014, end: 2017

REACTIONS (2)
  - Cushing^s syndrome [Unknown]
  - Therapeutic product effect incomplete [Unknown]
